FAERS Safety Report 6564360-8 (Version None)
Quarter: 2010Q1

REPORT INFORMATION
  Report Type: 
  Country: None (occurrence: None)
  Receive Date: 20100201
  Receipt Date: 20100122
  Transmission Date: 20100710
  Serious: Yes (Hospitalization, Other)
  Sender: FDA-Public Use
  Company Number: US-JNJFOC-20100110449

PATIENT
  Sex: Male
  Weight: 95.26 kg

DRUGS (15)
  1. DURAGESIC-100 [Suspect]
     Indication: NECK PAIN
     Route: 062
  2. DURAGESIC-100 [Suspect]
     Route: 062
  3. DURAGESIC-100 [Suspect]
     Route: 062
  4. DURAGESIC-100 [Suspect]
     Indication: BACK PAIN
     Route: 062
  5. DURAGESIC-100 [Suspect]
     Route: 062
  6. DURAGESIC-100 [Suspect]
     Route: 062
  7. DURAGESIC-100 [Suspect]
     Route: 062
  8. DURAGESIC-100 [Suspect]
     Route: 062
  9. LYRICA [Suspect]
     Indication: NECK PAIN
     Route: 048
  10. LYRICA [Suspect]
     Indication: BACK PAIN
     Route: 048
  11. FENTANYL [Suspect]
     Indication: NECK PAIN
     Route: 062
  12. FENTANYL [Suspect]
     Indication: BACK PAIN
     Route: 062
  13. DIOVAN [Concomitant]
     Indication: HYPERTENSION
     Route: 048
  14. FLOMAX [Concomitant]
     Indication: HYPERTENSION
     Route: 048
  15. VITAMIN [Concomitant]
     Indication: MEDICAL DIET
     Route: 048

REACTIONS (10)
  - BACK DISORDER [None]
  - DRUG EFFECT DECREASED [None]
  - DRUG INEFFECTIVE [None]
  - INTERVERTEBRAL DISC PROTRUSION [None]
  - INTRACRANIAL HYPOTENSION [None]
  - LUNG DISORDER [None]
  - NECK PAIN [None]
  - NERVE INJURY [None]
  - RESPIRATORY DISTRESS [None]
  - UPPER RESPIRATORY TRACT INFECTION [None]
